FAERS Safety Report 9197323 (Version 1)
Quarter: 2013Q1

REPORT INFORMATION
  Report Type: Spontaneous
  Country: US (occurrence: None)
  Receive Date: 20120709
  Receipt Date: 20120709
  Transmission Date: 20140127
  Serious: No
  Sender: FDA-Public Use
  Company Number: 2012HGS-003605

PATIENT
  Age: 35 Year
  Sex: Female
  Weight: 68.04 kg

DRUGS (14)
  1. BENLYSTA [Suspect]
     Indication: SYSTEMIC LUPUS ERYTHEMATOSUS
     Dosage: 1 IN 28 D
     Route: 041
     Dates: start: 20120430
  2. METHOTREXATE (METHOTREXATE) (METHOTREXATE) [Concomitant]
  3. EFFEXOR (VENLAFAXINE HYDROCHLORIDE) [Concomitant]
  4. PREDNISONE (PREDNISONE) (PREDNISONE) [Concomitant]
  5. COQ 10 (UBIDECARENONE) (UBIDECARENONE) [Concomitant]
  6. DHEA ( (PRASTERONE) (PRASTERONE) [Concomitant]
  7. VITAMIN B 12 (VITAMIN B 12) (VITAMIN B NOS) [Concomitant]
  8. STRESS VITAMIN B 6 (PYRIDOXINE HYDROCHLORIDE) (PYRIDOXINE HYDROCHLORIDE) [Concomitant]
  9. VITAMIN K (PHYTOMENADIONE) (PHYTOMENADIONE) [Concomitant]
  10. N-ACELYTE L CYSTINE (CYSTINE) (CYSTINE) [Concomitant]
  11. VITAMIN E (TOCOPHEROL) (TOCOPHEROL) [Concomitant]
  12. KLONOPIN [Concomitant]
  13. TRAZODONE (TRAZODONE) (TRAZODONE) [Concomitant]
  14. MULTIVITAMIN (VIGRAN) (ERGOCALCIFEROL, ASCORBIC ACID, PYRIDOXINE HYDROCHLORIDE, THIAMINE HYDROCHLORIDE, RETINOL , RIBOFLAVIN, NICOTINAMIDE, CALCIUM PANTOTHENATE) [Concomitant]

REACTIONS (2)
  - Dizziness [None]
  - Visual impairment [None]
